FAERS Safety Report 16501237 (Version 2)
Quarter: 2019Q3

REPORT INFORMATION
  Report Type: Spontaneous
  Country: JP (occurrence: JP)
  Receive Date: 20190701
  Receipt Date: 20190711
  Transmission Date: 20191004
  Serious: Yes (Hospitalization, Other)
  Sender: FDA-Public Use
  Company Number: JP-PFIZER INC-2019270504

PATIENT
  Age: 49 Year
  Sex: Female

DRUGS (1)
  1. CHAMPIX 0.5MG [Suspect]
     Active Substance: VARENICLINE TARTRATE
     Indication: SMOKING CESSATION THERAPY
     Dosage: 0.5 MG, DAILY
     Route: 048
     Dates: start: 20190621, end: 20190622

REACTIONS (3)
  - Mouth swelling [Unknown]
  - Swelling face [Unknown]
  - Oculomucocutaneous syndrome [Unknown]

NARRATIVE: CASE EVENT DATE: 20190622
